FAERS Safety Report 4458486-2 (Version None)
Quarter: 2004Q3

REPORT INFORMATION
  Report Type: 
  Country: None (occurrence: None)
  Receive Date: 20040922
  Receipt Date: 20040426
  Transmission Date: 20050211
  Serious: Yes (Hospitalization)
  Sender: FDA-Public Use
  Company Number: US-SHR-04-024037

PATIENT
  Age: 31 Year
  Sex: Female
  Weight: 124.7 kg

DRUGS (2)
  1. BETASERON [Suspect]
     Indication: MULTIPLE SCLEROSIS
     Dosage: 2 MIU, EVERY 2D, SUBCUTANEOUS
     Route: 058
     Dates: start: 20040404, end: 20040414
  2. METFORMIN HCL [Concomitant]

REACTIONS (2)
  - GRAND MAL CONVULSION [None]
  - NUCLEAR MAGNETIC RESONANCE IMAGING ABNORMAL [None]
